FAERS Safety Report 5656083-4 (Version None)
Quarter: 2008Q1

REPORT INFORMATION
  Report Type: 
  Country: None (occurrence: None)
  Receive Date: 20080305
  Receipt Date: 20080222
  Transmission Date: 20080703
  Serious: Yes (Death, Hospitalization)
  Sender: FDA-Public Use
  Company Number: 2008US000599

PATIENT
  Age: 61 Year
  Sex: Male
  Weight: 62.3 kg

DRUGS (2)
  1. AMBISOME [Suspect]
     Indication: FUNGAL INFECTION
     Dosage: 3 MG/KG, UID/QD, IV DRIP
     Route: 041
     Dates: start: 20071212
  2. SCOPOLAMINE [Concomitant]

REACTIONS (1)
  - DEATH [None]
